FAERS Safety Report 8251584-7 (Version None)
Quarter: 2012Q2

REPORT INFORMATION
  Report Type: 
  Country: None (occurrence: None)
  Receive Date: 20120402
  Receipt Date: 20111207
  Transmission Date: 20120825
  Serious: No
  Sender: FDA-Public Use
  Company Number: US-ABBOTT-11P-163-0881647-00

PATIENT
  Sex: Male
  Weight: 93.978 kg

DRUGS (5)
  1. CARVEDILOL [Concomitant]
     Indication: BLOOD PRESSURE
  2. LEXAPRO [Concomitant]
     Indication: AFFECTIVE DISORDER
  3. XANAX [Concomitant]
     Indication: ANXIETY
  4. RAMIPRIL [Concomitant]
     Indication: PROPHYLAXIS
  5. ANDROGEL [Suspect]
     Indication: BLOOD TESTOSTERONE DECREASED
     Route: 061
     Dates: start: 20110901

REACTIONS (1)
  - DRUG INEFFECTIVE [None]
